FAERS Safety Report 10006690 (Version 1)
Quarter: 2014Q1

REPORT INFORMATION
  Report Type: Spontaneous
  Country: US (occurrence: None)
  Receive Date: 20140311
  Receipt Date: 20140311
  Transmission Date: 20141002
  Serious: Yes (Hospitalization)
  Sender: FDA-Public Use
  Company Number: 001680605A

PATIENT
  Age: 34 Year
  Sex: Female

DRUGS (6)
  1. PROACTIV+ SKIN SMOOTHING EXFOLIATOR [Suspect]
     Indication: ACNE
     Dosage: DERMAL
     Dates: start: 20131105, end: 20131110
  2. PROACTIV+ PORE TARGETING TREATMENT [Suspect]
     Dosage: DERMAL
     Dates: start: 20131105, end: 20131110
  3. PROACTIV+ COMPLEXION PERFECTING HYDRATOR [Suspect]
     Indication: ACNE
     Dosage: DERMAL
     Dates: start: 20131105, end: 20131120
  4. PROACTIV+ MARK FADING PADS [Suspect]
     Indication: ACNE
     Dosage: DERMAL
     Dates: start: 20131105, end: 20131110
  5. PROACTIV+ SKIN PURIFYING MASK [Suspect]
     Indication: ACNE
     Dosage: DERMAL
     Dates: start: 20131105, end: 20131110
  6. MULTIVITAMIN [Concomitant]

REACTIONS (3)
  - Swelling face [None]
  - Eye swelling [None]
  - Thermal burn [None]
